FAERS Safety Report 8062016-6 (Version None)
Quarter: 2012Q1

REPORT INFORMATION
  Report Type: 
  Country: None (occurrence: None)
  Receive Date: 20120123
  Receipt Date: 20120110
  Transmission Date: 20120608
  Serious: Yes (Hospitalization, Other)
  Sender: FDA-Public Use
  Company Number: US-JNJFOC-20120103503

PATIENT
  Sex: Male
  Weight: 92.99 kg

DRUGS (4)
  1. ADVAIR DISKUS 100/50 [Concomitant]
     Indication: ASTHMA
     Route: 065
  2. CELEBREX [Suspect]
     Indication: INFLAMMATION
     Route: 065
  3. REMICADE [Suspect]
     Indication: RHEUMATOID ARTHRITIS
     Route: 042
  4. ACIPHEX [Suspect]
     Indication: BARRETT'S OESOPHAGUS
     Route: 065

REACTIONS (14)
  - PNEUMONIA [None]
  - CHEST PAIN [None]
  - PAIN [None]
  - ADVERSE EVENT [None]
  - NERVE INJURY [None]
  - BRONCHITIS [None]
  - SKIN ULCER [None]
  - HYPERTENSION [None]
  - OEDEMA PERIPHERAL [None]
  - ABDOMINAL PAIN UPPER [None]
  - LOCALISED INFECTION [None]
  - BACK DISORDER [None]
  - HYPERKERATOSIS [None]
  - KNEE ARTHROPLASTY [None]
